FAERS Safety Report 5333734-5 (Version None)
Quarter: 2007Q1

REPORT INFORMATION
  Report Type: 
  Country: None (occurrence: None)
  Receive Date: 20070306
  Receipt Date: 20061110
  Transmission Date: 20070707
  Serious: Yes (Hospitalization)
  Sender: FDA-Public Use
  Company Number: A03200606801

PATIENT
  Age: 72 Year
  Sex: Female
  Weight: 48.98 kg

DRUGS (6)
  1. PLAVIX [Suspect]
     Indication: CEREBROVASCULAR ACCIDENT
     Dosage: 75 MG QD - ORAL
     Route: 048
     Dates: start: 20061001, end: 20061101
  2. PLAVIX [Suspect]
     Indication: MYOCARDIAL INFARCTION
     Dosage: 75 MG QD - ORAL
     Route: 048
     Dates: start: 20061001, end: 20061101
  3. PANTOPRAZOLE SODIUM [Concomitant]
  4. ACETAMINOPHEN- PROPOXYPHENE HCL TAB [Concomitant]
  5. ALPRAZOLAM [Concomitant]
  6. METOPROLOL SUCCINATE [Concomitant]

REACTIONS (10)
  - ABDOMINAL PAIN [None]
  - ACCELERATED HYPERTENSION [None]
  - ANOREXIA [None]
  - ASTHENIA [None]
  - DIZZINESS [None]
  - DYSPNOEA [None]
  - FATIGUE [None]
  - INSOMNIA [None]
  - NAUSEA [None]
  - SALIVARY HYPERSECRETION [None]
